FAERS Safety Report 8597544-8 (Version None)
Quarter: 2012Q3

REPORT INFORMATION
  Report Type: 
  Country: None (occurrence: None)
  Receive Date: 20120816
  Receipt Date: 20120808
  Transmission Date: 20120928
  Serious: Yes (Other)
  Sender: FDA-Public Use
  Company Number: US-BAYER-2012-056832

PATIENT
  Age: 60 Year
  Sex: Male

DRUGS (2)
  1. NEXAVAR [Suspect]
     Dosage: 400 MG, QD AT H.S.
     Route: 048
     Dates: start: 20120808
  2. NEXAVAR [Suspect]
     Indication: HEPATIC NEOPLASM MALIGNANT
     Dosage: UNK
     Dates: start: 20120523, end: 20120603

REACTIONS (3)
  - INFECTION [None]
  - PLATELET COUNT DECREASED [None]
  - BLOOD COUNT ABNORMAL [None]
